FAERS Safety Report 8130826-2 (Version None)
Quarter: 2012Q1

REPORT INFORMATION
  Report Type: 
  Country: None (occurrence: None)
  Receive Date: 20120213
  Receipt Date: 20120206
  Transmission Date: 20120608
  Serious: No
  Sender: FDA-Public Use
  Company Number: US-BIOGENIDEC-2012BI004764

PATIENT
  Age: 41 Year
  Sex: Female

DRUGS (2)
  1. AVONEX [Suspect]
     Indication: MULTIPLE SCLEROSIS
     Route: 030
     Dates: start: 20060901, end: 20100701
  2. AVONEX [Suspect]
     Route: 030
     Dates: start: 20100701

REACTIONS (4)
  - FATIGUE [None]
  - DYSPHONIA [None]
  - HEADACHE [None]
  - GAIT DISTURBANCE [None]
